FAERS Safety Report 26218364 (Version 1)
Quarter: 2025Q4

REPORT INFORMATION
  Report Type: Spontaneous
  Country: EU (occurrence: EU)
  Receive Date: 20251231
  Receipt Date: 20251231
  Transmission Date: 20260117
  Serious: Yes (Hospitalization)
  Sender: PFIZER
  Company Number: None

PATIENT
  Age: 80 Year
  Sex: Male

DRUGS (2)
  1. METHOTREXATE SODIUM [Suspect]
     Active Substance: METHOTREXATE SODIUM
     Indication: Psoriasis
     Dosage: 6 TABLET AT ONCE. ONE TIME A WEEK ON MONDAYS
     Dates: start: 20240923
  2. ELIQUIS [Concomitant]
     Active Substance: APIXABAN
     Indication: Supraventricular tachycardia
     Dosage: 1 TABLET IN THE MORNING,  1 TABLET IN THE EVENING
     Dates: start: 20200121

REACTIONS (5)
  - Mouth haemorrhage [Recovered/Resolved]
  - Haemorrhage urinary tract [Recovered/Resolved]
  - Pancytopenia [Recovered/Resolved]
  - Neutropenia [Recovered/Resolved]
  - Anaemia [Recovered/Resolved]

NARRATIVE: CASE EVENT DATE: 20251117
